FAERS Safety Report 15366428 (Version 1)
Quarter: 2018Q3

REPORT INFORMATION
  Report Type: Spontaneous
  Country: US (occurrence: US)
  Receive Date: 20180910
  Receipt Date: 20180910
  Transmission Date: 20181010
  Serious: No
  Sender: FDA-Public Use
  Company Number: US-SA-2018SA249515

PATIENT
  Age: 62 Year
  Sex: Female

DRUGS (8)
  1. PRALUENT [Suspect]
     Active Substance: ALIROCUMAB
     Dosage: 75 UNK
     Route: 058
     Dates: start: 20180829
  2. PRALUENT [Suspect]
     Active Substance: ALIROCUMAB
     Dosage: 150 UNK
     Route: 058
  3. ALIROCUMAB PREFILLED PEN [Suspect]
     Active Substance: ALIROCUMAB
     Dosage: 150 UNK
     Route: 058
  4. ALIROCUMAB PREFILLED PEN [Suspect]
     Active Substance: ALIROCUMAB
     Indication: BLOOD CHOLESTEROL INCREASED
     Dosage: 75 MG, QOW
     Route: 058
     Dates: start: 2016
  5. ALIROCUMAB PREFILLED PEN [Suspect]
     Active Substance: ALIROCUMAB
     Dosage: 75 UNK
     Route: 058
  6. ALIROCUMAB PREFILLED PEN [Suspect]
     Active Substance: ALIROCUMAB
     Dosage: UNK UNK, QOW
     Route: 058
     Dates: start: 20180829
  7. PRALUENT [Suspect]
     Active Substance: ALIROCUMAB
     Indication: BLOOD CHOLESTEROL INCREASED
     Dosage: 75 MG, QOW
     Route: 058
     Dates: start: 2016
  8. PRALUENT [Suspect]
     Active Substance: ALIROCUMAB
     Dosage: 75 UNK
     Route: 058

REACTIONS (7)
  - Blood cholesterol increased [Unknown]
  - Sneezing [Unknown]
  - Influenza [Recovering/Resolving]
  - Nasopharyngitis [Recovering/Resolving]
  - Ear disorder [Recovering/Resolving]
  - Nasopharyngitis [Unknown]
  - Oropharyngeal pain [Recovering/Resolving]

NARRATIVE: CASE EVENT DATE: 2018
